FAERS Safety Report 7981451-5 (Version None)
Quarter: 2011Q4

REPORT INFORMATION
  Report Type: 
  Country: None (occurrence: None)
  Receive Date: 20111215
  Receipt Date: 20111207
  Transmission Date: 20120403
  Serious: Yes (Other)
  Sender: FDA-Public Use
  Company Number: US-RB-031439-11

PATIENT
  Age: 72 Year
  Sex: Female

DRUGS (3)
  1. MUCINEX [Suspect]
     Indication: SINUSITIS
     Route: 048
     Dates: start: 20111201
  2. TENORMIN BETA BLOCKER [Concomitant]
     Indication: HYPERTENSION
  3. NORVASC [Concomitant]
     Indication: HYPERTENSION

REACTIONS (2)
  - HEART RATE INCREASED [None]
  - HYPERTENSION [None]
